FAERS Safety Report 14703115 (Version 6)
Quarter: 2019Q1

REPORT INFORMATION
  Report Type: Report from Study
  Country: None (occurrence: US)
  Receive Date: 20180402
  Receipt Date: 20190222
  Transmission Date: 20190417
  Serious: Yes (Other)
  Sender: FDA-Public Use
  Company Number: US-ABBVIE-18K-163-2304236-00

PATIENT
  Age: 21 Year
  Sex: Female

DRUGS (3)
  1. HUMIRA [Suspect]
     Active Substance: ADALIMUMAB
     Route: 058
     Dates: start: 2017, end: 201802
  2. HUMIRA [Suspect]
     Active Substance: ADALIMUMAB
     Indication: HIDRADENITIS
     Route: 058
     Dates: start: 20160906, end: 2017
  3. HUMIRA [Suspect]
     Active Substance: ADALIMUMAB
     Route: 058
     Dates: start: 201802, end: 201803

REACTIONS (9)
  - Influenza [Recovered/Resolved]
  - Influenza [Recovered/Resolved]
  - Keloid scar [Recovered/Resolved]
  - Hidradenitis [Recovered/Resolved]
  - Bronchitis [Unknown]
  - Immunodeficiency [Recovering/Resolving]
  - Influenza [Recovered/Resolved]
  - Influenza [Recovered/Resolved]
  - Pertussis [Unknown]

NARRATIVE: CASE EVENT DATE: 2017
